FAERS Safety Report 17484391 (Version 9)
Quarter: 2023Q2

REPORT INFORMATION
  Report Type: Spontaneous
  Country: US (occurrence: US)
  Receive Date: 20200302
  Receipt Date: 20230523
  Transmission Date: 20230722
  Serious: Yes (Other)
  Sender: FDA-Public Use
  Company Number: US-GILEAD-2020-0452915

PATIENT
  Age: 51 Year
  Sex: Male
  Weight: 88.435 kg

DRUGS (54)
  1. TRUVADA [Suspect]
     Active Substance: EMTRICITABINE\TENOFOVIR DISOPROXIL FUMARATE
     Indication: HIV infection
     Dosage: UNK
     Route: 048
     Dates: start: 20090225, end: 20100809
  2. TRUVADA [Suspect]
     Active Substance: EMTRICITABINE\TENOFOVIR DISOPROXIL FUMARATE
     Dosage: UNK
     Route: 048
     Dates: start: 20081203, end: 20100809
  3. TRUVADA [Suspect]
     Active Substance: EMTRICITABINE\TENOFOVIR DISOPROXIL FUMARATE
     Dosage: UNK
     Route: 048
     Dates: start: 20090225, end: 20100809
  4. ACETAMINOPHEN [Concomitant]
     Active Substance: ACETAMINOPHEN
  5. AMOXICILLIN [Concomitant]
     Active Substance: AMOXICILLIN
  6. ASPIRIN [Concomitant]
     Active Substance: ASPIRIN
  7. BACTRIM [Concomitant]
     Active Substance: SULFAMETHOXAZOLE\TRIMETHOPRIM
  8. CORTISONE [Concomitant]
     Active Substance: CORTISONE
  9. OMEPRAZOLE [Concomitant]
     Active Substance: OMEPRAZOLE
  10. PENICILLIN [Concomitant]
     Active Substance: PENICILLIN
  11. PREDNISONE [Concomitant]
     Active Substance: PREDNISONE
  12. TETRACYCLINE [Concomitant]
     Active Substance: TETRACYCLINE
  13. VANCOMYCIN [Concomitant]
     Active Substance: VANCOMYCIN
  14. COMBIVIR [Concomitant]
     Active Substance: LAMIVUDINE\ZIDOVUDINE
     Indication: HIV infection
  15. EDURANT [Concomitant]
     Active Substance: RILPIVIRINE HYDROCHLORIDE
     Indication: HIV infection
  16. ISENTRESS [Concomitant]
     Active Substance: RALTEGRAVIR POTASSIUM
     Indication: HIV infection
  17. KALETRA [Concomitant]
     Active Substance: LOPINAVIR\RITONAVIR
     Indication: HIV infection
  18. NORVIR [Concomitant]
     Active Substance: RITONAVIR
     Indication: HIV infection
  19. REYATAZ [Concomitant]
     Active Substance: ATAZANAVIR SULFATE
     Indication: HIV infection
  20. SUSTIVA [Concomitant]
     Active Substance: EFAVIRENZ
     Indication: HIV infection
  21. TIVICAY [Concomitant]
     Active Substance: DOLUTEGRAVIR SODIUM
     Indication: HIV infection
  22. VIRAMUNE [Concomitant]
     Active Substance: NEVIRAPINE
     Indication: HIV infection
  23. ZIAGEN [Concomitant]
     Active Substance: ABACAVIR SULFATE
     Indication: HIV infection
  24. LIVALO [Concomitant]
     Active Substance: PITAVASTATIN CALCIUM
  25. TYLENOL WITH CODEINE [Concomitant]
     Active Substance: ACETAMINOPHEN\CODEINE PHOSPHATE
  26. IBUPROFEN [Concomitant]
     Active Substance: IBUPROFEN
  27. PROZAC [Concomitant]
     Active Substance: FLUOXETINE HYDROCHLORIDE
  28. LEVOFLOXACIN [Concomitant]
     Active Substance: LEVOFLOXACIN
  29. VISIPAQUE [Concomitant]
     Active Substance: IODIXANOL
  30. CIPROFLOXACIN [Concomitant]
     Active Substance: CIPROFLOXACIN
  31. COLACE [Concomitant]
     Active Substance: DOCUSATE SODIUM
  32. CEFTRIAXONE [Concomitant]
     Active Substance: CEFTRIAXONE
  33. MECLIZINE [Concomitant]
     Active Substance: MECLIZINE HYDROCHLORIDE
  34. PEGINTERFERON ALFA-2A;RIBAVIRIN [Concomitant]
  35. HEPATITIS A VIRUS STRAIN HM175 ANTIGEN (FORMALDEHYDE INACTIVATED) [Concomitant]
     Active Substance: HEPATITIS A VIRUS STRAIN HM175 ANTIGEN (FORMALDEHYDE INACTIVATED)
  36. INFLUENZA VIRUS VACCINE [Concomitant]
     Active Substance: INFLUENZA VIRUS VACCINE
  37. MARINOL [Concomitant]
     Active Substance: DRONABINOL
  38. CEFIXIME [Concomitant]
     Active Substance: CEFIXIME
  39. TRAMADOL [Concomitant]
     Active Substance: TRAMADOL
  40. VALTREX [Concomitant]
     Active Substance: VALACYCLOVIR HYDROCHLORIDE
  41. HYDROCORTISONE [Concomitant]
     Active Substance: HYDROCORTISONE
  42. SENNA S [DOCUSATE SODIUM;SENNOSIDE A+B] [Concomitant]
  43. DITROPAN [Concomitant]
     Active Substance: OXYBUTYNIN CHLORIDE
  44. CIALIS [Concomitant]
     Active Substance: TADALAFIL
  45. CLARITHROMYCIN [Concomitant]
     Active Substance: CLARITHROMYCIN
  46. CLARITHROMYCIN [Concomitant]
     Active Substance: CLARITHROMYCIN
  47. AZT [Concomitant]
     Active Substance: ZIDOVUDINE
     Indication: HIV infection
  48. TAMSULOSIN HYDROCHLORIDE [Concomitant]
     Active Substance: TAMSULOSIN HYDROCHLORIDE
  49. ROLAIDS [Concomitant]
     Active Substance: CALCIUM CARBONATE\MAGNESIUM HYDROXIDE
  50. FLEET ENEMA [Concomitant]
     Active Substance: SODIUM PHOSPHATE, DIBASIC\SODIUM PHOSPHATE, MONOBASIC
  51. VENTOLIN HFA [Concomitant]
     Active Substance: ALBUTEROL SULFATE
  52. ALBUTEROL SULFATE [Concomitant]
     Active Substance: ALBUTEROL SULFATE
  53. PROVENTIL HFA [Concomitant]
     Active Substance: ALBUTEROL SULFATE
  54. NEUPOGEN [Concomitant]
     Active Substance: FILGRASTIM

REACTIONS (17)
  - Renal impairment [Unknown]
  - Osteoporosis [Not Recovered/Not Resolved]
  - Cerebral haemorrhage [Unknown]
  - Nephrolithiasis [Recovered/Resolved]
  - Osteopenia [Not Recovered/Not Resolved]
  - Bone density decreased [Unknown]
  - Tooth loss [Unknown]
  - Tooth fracture [Unknown]
  - Economic problem [Unknown]
  - Anhedonia [Unknown]
  - Emotional distress [Unknown]
  - Anxiety [Unknown]
  - Pain [Unknown]
  - Condition aggravated [Unknown]
  - Physical disability [Unknown]
  - Loss of personal independence in daily activities [Unknown]
  - Fear of falling [Unknown]

NARRATIVE: CASE EVENT DATE: 20090901
